FAERS Safety Report 5205271-X (Version None)
Quarter: 2007Q1

REPORT INFORMATION
  Report Type: 
  Country: None (occurrence: None)
  Receive Date: 20070110
  Receipt Date: 20070103
  Transmission Date: 20070707
  Serious: Yes (Other)
  Sender: FDA-Public Use
  Company Number: CA-PFIZER INC-2007002328

PATIENT
  Age: 77 Year
  Sex: Male

DRUGS (2)
  1. VIAGRA [Suspect]
     Route: 048
  2. ASPIRIN [Concomitant]

REACTIONS (2)
  - CATARACT [None]
  - HEADACHE [None]
